FAERS Safety Report 4667445-6 (Version None)
Quarter: 2005Q2

REPORT INFORMATION
  Report Type: 
  Country: None (occurrence: None)
  Receive Date: 20050519
  Receipt Date: 20050519
  Transmission Date: 20051028
  Serious: Yes (Hospitalization)
  Sender: FDA-Public Use
  Company Number: None

PATIENT
  Age: 62 Year
  Sex: Male
  Weight: 93 kg

DRUGS (11)
  1. GATIFLOXACIN [Suspect]
  2. GLYBURIDE [Concomitant]
  3. ARTIFICIAL TEARS POLYVINYL ALCOHOL [Concomitant]
  4. KETOPROLAC TROMETHAMINE [Concomitant]
  5. ETODOLAC [Concomitant]
  6. SIMVASTATIN [Concomitant]
  7. METFORMIN HCL [Concomitant]
  8. ASPIRIN [Concomitant]
  9. GEMFIBROZIL [Concomitant]
  10. UREA [Concomitant]
  11. MUPIROCIN [Concomitant]

REACTIONS (1)
  - PRURITUS [None]
